FAERS Safety Report 23165389 (Version 1)
Quarter: 2023Q4

REPORT INFORMATION
  Report Type: Spontaneous
  Country: KR (occurrence: KR)
  Receive Date: 20231109
  Receipt Date: 20231109
  Transmission Date: 20240110
  Serious: Yes (Hospitalization)
  Sender: FDA-Public Use
  Company Number: KR-MYLANLABS-2023M1119410

PATIENT
  Age: 78 Year
  Sex: Male

DRUGS (6)
  1. LIPITOR [Suspect]
     Active Substance: ATORVASTATIN CALCIUM
     Indication: Pneumonia
     Dosage: 1 DOSAGE FORM, QD
     Route: 065
     Dates: start: 20191211, end: 20200313
  2. DOXOFYLLINE [Concomitant]
     Active Substance: DOXOFYLLINE
     Indication: Pneumonia
     Dosage: 1 DOSAGE FORM, BID
     Route: 065
     Dates: start: 20191211, end: 20200313
  3. AMBROXOL HYDROCHLORIDE [Concomitant]
     Active Substance: AMBROXOL HYDROCHLORIDE
     Indication: Pneumonia
     Dosage: 1 DOSAGE FORM TID 0.33 DAYS
     Route: 065
     Dates: start: 20200121, end: 20200313
  4. ACETYLCYSTEINE [Concomitant]
     Active Substance: ACETYLCYSTEINE
     Indication: Pneumonia
     Dosage: 1 DOSAGE FORM TID 0.33 DAYS
     Route: 065
     Dates: start: 20200121, end: 20200313
  5. MOSAPRIDE CITRATE DIHYDRATE [Concomitant]
     Active Substance: MOSAPRIDE CITRATE DIHYDRATE
     Indication: Pneumonia
     Dosage: 1 DOSAGE FORM TID 0.33 DAYS
     Route: 065
     Dates: start: 20200304, end: 20200313
  6. LANSOPRAZOLE [Concomitant]
     Active Substance: LANSOPRAZOLE
     Indication: Pneumonia
     Dosage: 1 DOSAGE FORM, QD
     Route: 065
     Dates: start: 20200304, end: 20200316

REACTIONS (2)
  - Thrombocytopenia [Recovered/Resolved]
  - Off label use [Unknown]

NARRATIVE: CASE EVENT DATE: 20191211
